FAERS Safety Report 8579841-5 (Version None)
Quarter: 2012Q3

REPORT INFORMATION
  Report Type: 
  Country: None (occurrence: None)
  Receive Date: 20120808
  Receipt Date: 20120801
  Transmission Date: 20120928
  Serious: Yes (Hospitalization)
  Sender: FDA-Public Use
  Company Number: US-ELI_LILLY_AND_COMPANY-US201208001033

PATIENT
  Sex: Female

DRUGS (6)
  1. LISINOPRIL [Concomitant]
  2. EFFIENT [Suspect]
     Indication: CORONARY ARTERIAL STENT INSERTION
     Dosage: 10 MG, QD
     Route: 065
  3. METOPROLOL TARTRATE [Concomitant]
  4. AMLODIPINE [Concomitant]
  5. ASPIRIN [Concomitant]
     Dosage: 81 MG, UNKNOWN
     Route: 065
  6. LIPITOR [Concomitant]

REACTIONS (1)
  - CORONARY ARTERY BYPASS [None]
